FAERS Safety Report 23672098 (Version 1)
Quarter: 2024Q1

REPORT INFORMATION
  Report Type: Spontaneous
  Country: US (occurrence: US)
  Receive Date: 20240326
  Receipt Date: 20240326
  Transmission Date: 20240410
  Serious: No
  Sender: FDA-Public Use
  Company Number: US-NEBO-PC013774

PATIENT
  Age: 50 Year
  Sex: Female

DRUGS (2)
  1. MONOFERRIC [Suspect]
     Active Substance: FERRIC DERISOMALTOSE
     Indication: Product used for unknown indication
     Route: 050
     Dates: start: 20240226, end: 20240226
  2. PEPCID [Concomitant]
     Active Substance: FAMOTIDINE
     Indication: Premedication
     Dates: start: 20240226, end: 20240226

REACTIONS (1)
  - Fishbane reaction [Recovered/Resolved]

NARRATIVE: CASE EVENT DATE: 20240226
